FAERS Safety Report 10607617 (Version 1)
Quarter: 2014Q4

REPORT INFORMATION
  Report Type: Spontaneous
  Country: GB (occurrence: GB)
  Receive Date: 20141125
  Receipt Date: 20141125
  Transmission Date: 20150529
  Serious: Yes (Death, Other)
  Sender: FDA-Public Use
  Company Number: GB-TEVA-523019ISR

PATIENT
  Age: 39 Year
  Sex: Male
  Weight: 90 kg

DRUGS (12)
  1. LORAZEPAM. [Concomitant]
     Active Substance: LORAZEPAM
     Route: 048
  2. VIRAFERON [Suspect]
     Active Substance: INTERFERON ALFA-2B
     Indication: HEPATITIS C
     Route: 058
  3. HYOSCINE HYDROBROMIDE [Concomitant]
     Active Substance: SCOPOLAMINE
  4. SENNA [Concomitant]
     Active Substance: SENNA LEAF\SENNOSIDES\SENNOSIDES A AND B
     Route: 048
  5. RIBAVIRIN. [Suspect]
     Active Substance: RIBAVIRIN
     Indication: HEPATITIS C
  6. ZAPONEX [Suspect]
     Active Substance: CLOZAPINE
     Dosage: 150MG MANE, 400MG NOCTE
     Route: 048
     Dates: start: 20131206, end: 20140919
  7. CHLORPROMAZINE [Concomitant]
     Active Substance: CHLORPROMAZINE
     Dosage: 50 MG, MAX 200 MG PER DAY; AS NEEDED
  8. CINNARIZINE [Concomitant]
     Active Substance: CINNARIZINE
  9. TRIHEXYPHENIDYL [Concomitant]
     Active Substance: TRIHEXYPHENIDYL
     Indication: SALIVARY HYPERSECRETION
  10. HEROIN [Suspect]
     Active Substance: DIACETYLMORPHINE
  11. LACTULOSE. [Concomitant]
     Active Substance: LACTULOSE
     Route: 048
  12. DIAZEPAM. [Suspect]
     Active Substance: DIAZEPAM

REACTIONS (20)
  - Dysarthria [Not Recovered/Not Resolved]
  - Neutrophil count decreased [Not Recovered/Not Resolved]
  - Hepatitis C [Not Recovered/Not Resolved]
  - Portal tract inflammation [Not Recovered/Not Resolved]
  - Alanine aminotransferase increased [Unknown]
  - Hepatic steatosis [Not Recovered/Not Resolved]
  - Toxicity to various agents [Fatal]
  - Glomerulosclerosis [Not Recovered/Not Resolved]
  - Antipsychotic drug level increased [Not Recovered/Not Resolved]
  - Inflammation [Not Recovered/Not Resolved]
  - Product use issue [Not Recovered/Not Resolved]
  - Neutropenia [Not Recovered/Not Resolved]
  - Leukopenia [Not Recovered/Not Resolved]
  - Activated partial thromboplastin time prolonged [Unknown]
  - Visceral congestion [Not Recovered/Not Resolved]
  - Pneumoconiosis [Not Recovered/Not Resolved]
  - International normalised ratio decreased [Unknown]
  - Somnolence [Not Recovered/Not Resolved]
  - White blood cell count decreased [Not Recovered/Not Resolved]
  - Monocyte count increased [Unknown]

NARRATIVE: CASE EVENT DATE: 20140527
